FAERS Safety Report 8422095-0 (Version None)
Quarter: 2012Q2

REPORT INFORMATION
  Report Type: 
  Country: None (occurrence: None)
  Receive Date: 20120323
  Receipt Date: 20110209
  Transmission Date: 20120825
  Serious: Yes (Hospitalization)
  Sender: FDA-Public Use
  Company Number: 163-21880-11021363

PATIENT
  Age: 75 Year
  Sex: Male

DRUGS (9)
  1. PENTASA [Concomitant]
  2. CLARITIN [Concomitant]
  3. WARFARIN SODIUM [Concomitant]
  4. REVLIMID [Suspect]
     Indication: MYELODYSPLASTIC SYNDROME
     Dosage: 10 MG, 1 IN 1 D, PO, 10 MG, 1 IN 1 D, PO
     Route: 048
     Dates: start: 20100901
  5. REVLIMID [Suspect]
     Indication: MYELODYSPLASTIC SYNDROME
     Dosage: 10 MG, 1 IN 1 D, PO, 10 MG, 1 IN 1 D, PO
     Route: 048
     Dates: start: 20100801, end: 20100101
  6. LEVITRA [Concomitant]
  7. ACETAMINOPHEN [Concomitant]
  8. BENADRYL [Concomitant]
  9. VITAMIN B12 [Concomitant]

REACTIONS (1)
  - PULMONARY EMBOLISM [None]
